FAERS Safety Report 8162562-0 (Version None)
Quarter: 2012Q1

REPORT INFORMATION
  Report Type: 
  Country: None (occurrence: None)
  Receive Date: 20120224
  Receipt Date: 20120213
  Transmission Date: 20120608
  Serious: Yes (Hospitalization)
  Sender: FDA-Public Use
  Company Number: JP-TEVA-323658ISR

PATIENT
  Age: 36 Year

DRUGS (4)
  1. SULFAMETHIZOLE TAB [Concomitant]
     Indication: INFECTION PROPHYLAXIS
  2. PREDNISOLONE [Concomitant]
     Indication: HAEMOLYTIC ANAEMIA
  3. BENDAMUSTINE [Suspect]
     Indication: B-CELL LYMPHOMA
     Dosage: 120 MG/M2;
     Route: 042
     Dates: start: 20120110, end: 20120111
  4. BENDAMUSTINE [Suspect]
     Dosage: 120 MG/M2;
     Route: 042
     Dates: start: 20120131, end: 20120201

REACTIONS (1)
  - HEPATIC FUNCTION ABNORMAL [None]
